FAERS Safety Report 10268751 (Version 1)
Quarter: 2014Q2

REPORT INFORMATION
  Report Type: Spontaneous
  Country: US (occurrence: US)
  Receive Date: 20140630
  Receipt Date: 20140630
  Transmission Date: 20141212
  Serious: Yes (Other)
  Sender: FDA-Public Use
  Company Number: US-ABBVIE-14P-163-1249848-00

PATIENT
  Sex: Female

DRUGS (4)
  1. HUMIRA [Suspect]
     Indication: COLITIS ULCERATIVE
     Route: 058
  2. HUMIRA [Suspect]
  3. HUMIRA [Suspect]
     Dates: end: 201206
  4. HUMIRA [Suspect]
     Route: 058
     Dates: start: 201207

REACTIONS (8)
  - Osteoarthritis [Recovered/Resolved]
  - Arthralgia [Recovered/Resolved]
  - Ingrown hair [Recovered/Resolved]
  - Wound [Not Recovered/Not Resolved]
  - Skin infection [Not Recovered/Not Resolved]
  - Gait disturbance [Recovered/Resolved]
  - Gait disturbance [Recovered/Resolved]
  - Ingrown hair [Not Recovered/Not Resolved]
